FAERS Safety Report 12088729 (Version 2)
Quarter: 2017Q3

REPORT INFORMATION
  Report Type: Spontaneous
  Country: US (occurrence: US)
  Receive Date: 20160218
  Receipt Date: 20170901
  Transmission Date: 20171127
  Serious: Yes (Other)
  Sender: FDA-Public Use
  Company Number: US-SUN PHARMACEUTICAL INDUSTRIES LTD-2016US-111598

PATIENT
  Age: 3 Year
  Sex: Male

DRUGS (3)
  1. QUINIDINE [Suspect]
     Active Substance: QUINIDINE
     Dosage: 22.6 MG/KG, DAILY
     Route: 065
  2. QUINIDINE [Suspect]
     Active Substance: QUINIDINE
     Dosage: 34.4 MG/KG, DAILY
     Route: 065
  3. QUINIDINE [Suspect]
     Active Substance: QUINIDINE
     Indication: EPILEPSY
     Dosage: 12 MG/KG, DAILY
     Route: 065

REACTIONS (2)
  - Off label use [Unknown]
  - Drug ineffective for unapproved indication [Unknown]
